FAERS Safety Report 7823604-2 (Version None)
Quarter: 2011Q4

REPORT INFORMATION
  Report Type: 
  Country: None (occurrence: None)
  Receive Date: 20111019
  Receipt Date: 20111013
  Transmission Date: 20120403
  Serious: Yes (Other)
  Sender: FDA-Public Use
  Company Number: US-PFIZER INC-2011235811

PATIENT
  Sex: Female

DRUGS (1)
  1. ESTRING [Suspect]
     Indication: VULVOVAGINAL DRYNESS
     Dosage: 2 MG, UNK
     Route: 067

REACTIONS (5)
  - POOR QUALITY DRUG ADMINISTERED [None]
  - EYE INFECTION [None]
  - RASH [None]
  - PELVIC PAIN [None]
  - VAGINAL INFLAMMATION [None]
